FAERS Safety Report 9208163 (Version 1)
Quarter: 2013Q2

REPORT INFORMATION
  Report Type: Spontaneous
  Country: GB (occurrence: GB)
  Receive Date: 20130403
  Receipt Date: 20130403
  Transmission Date: 20140414
  Serious: Yes (Other)
  Sender: FDA-Public Use
  Company Number: PHHY2013GB030952

PATIENT
  Sex: Female

DRUGS (5)
  1. FOLIC ACID [Suspect]
     Route: 064
     Dates: start: 20110801
  2. FLUOXETINE [Suspect]
     Route: 064
     Dates: start: 20111114, end: 20111128
  3. CO-CODAMOL [Suspect]
     Dosage: UNK UKN, UNK, 30/500
     Route: 064
     Dates: start: 20111114, end: 20111130
  4. PHENOXYMETHYLPENICILLIN [Suspect]
     Route: 064
     Dates: start: 20120102, end: 20120109
  5. M M RVAXPRO [Suspect]
     Indication: IMMUNISATION
     Route: 064
     Dates: start: 20110707, end: 20110707

REACTIONS (1)
  - Gastroenteritis viral [Unknown]
